FAERS Safety Report 5447645-8 (Version None)
Quarter: 2007Q3

REPORT INFORMATION
  Report Type: 
  Country: None (occurrence: None)
  Receive Date: 20070906
  Receipt Date: 20070906
  Transmission Date: 20080115
  Serious: No
  Sender: FDA-Public Use
  Company Number: None

PATIENT
  Age: 58 Year
  Sex: Male
  Weight: 111.8 kg

DRUGS (9)
  1. DILAUDID [Suspect]
     Indication: PAIN
     Dosage: 1 MG Q 2 HRS PRN IV
     Route: 042
     Dates: start: 20070803
  2. INDERAL [Concomitant]
  3. OXYCODONE HCL [Concomitant]
  4. PROTONIX [Concomitant]
  5. RESTORIL [Concomitant]
  6. DEMEROL [Concomitant]
  7. MACROBID [Concomitant]
  8. NEOMYCIN [Concomitant]
  9. SANDOSTATIN [Concomitant]

REACTIONS (6)
  - CONFUSIONAL STATE [None]
  - DISORIENTATION [None]
  - DIZZINESS [None]
  - FEELING ABNORMAL [None]
  - HEADACHE [None]
  - SKIN DISCOLOURATION [None]
